FAERS Safety Report 13624875 (Version 1)
Quarter: 2017Q2

REPORT INFORMATION
  Report Type: Other
  Country: GB (occurrence: GB)
  Receive Date: 20170608
  Receipt Date: 20170608
  Transmission Date: 20170830
  Serious: Yes (Other)
  Sender: FDA-Public Use
  Company Number: GB-LUPIN PHARMACEUTICALS INC.-E2B_00006525

PATIENT
  Age: 81 Year
  Sex: Female
  Weight: 70 kg

DRUGS (21)
  1. CHLORPHENAMINE [Concomitant]
     Active Substance: CHLORPHENIRAMINE MALEATE
     Indication: PRURITUS
     Dosage: 1 DF,TID,
     Route: 065
     Dates: start: 20160929
  2. LINAGLIPTIN [Concomitant]
     Active Substance: LINAGLIPTIN
     Indication: PRODUCT USED FOR UNKNOWN INDICATION
     Dosage: 1 DF,QD,
     Route: 065
     Dates: start: 20130522
  3. OMEPRAZOLE. [Concomitant]
     Active Substance: OMEPRAZOLE
     Indication: PRODUCT USED FOR UNKNOWN INDICATION
     Dosage: TAKE 2 EACH MORNING AND ONE AT NIGHTTAKE 2 EACH MORNING AND ONE AT NIGHT
     Route: 065
     Dates: start: 20140911
  4. PRO D3 [Concomitant]
     Indication: PRODUCT USED FOR UNKNOWN INDICATION
     Dosage: FOR 12 WEEKS AS PER CONSULTANT.FOR 12 WEEKS
     Route: 065
     Dates: start: 20160916, end: 20161016
  5. WARFARIN SODIUM. [Concomitant]
     Active Substance: WARFARIN SODIUM
     Indication: PRODUCT USED FOR UNKNOWN INDICATION
     Dosage: AT 7PM AS DIRECTEDAT 7PM AS DIRECTED
     Route: 065
     Dates: start: 20130704
  6. ATORVASTATIN [Concomitant]
     Active Substance: ATORVASTATIN
     Indication: PRODUCT USED FOR UNKNOWN INDICATION
     Dosage: 1 DF,QD,
     Route: 065
     Dates: start: 20120614
  7. BENZYDAMINE HYDROCHLORIDE [Concomitant]
     Active Substance: BENZYDAMINE HYDROCHLORIDE
     Indication: PRODUCT USED FOR UNKNOWN INDICATION
     Dosage: TO RIGHT KNEETO RIGHT KNEE
     Route: 061
     Dates: start: 20130910
  8. FUROSEMIDE. [Concomitant]
     Active Substance: FUROSEMIDE
     Indication: DIURETIC THERAPY
     Dosage: (WATER TABLET)
     Route: 065
     Dates: start: 20151118
  9. IBUPROFEN. [Concomitant]
     Active Substance: IBUPROFEN
     Indication: PAIN
     Dosage: 1 DF,TID,
     Route: 061
     Dates: start: 20160715
  10. LANTUS [Concomitant]
     Active Substance: INSULIN GLARGINE
     Indication: PRODUCT USED FOR UNKNOWN INDICATION
     Dosage: AS DIRECTEDAS DIRECTED
     Route: 065
     Dates: start: 20150429
  11. DIGOXIN. [Concomitant]
     Active Substance: DIGOXIN
     Indication: HEART RATE
     Dosage: EACH MORNING  TO SLOW DOWN THE HEART RATEEACH MORNING TO SLOW DOWN THE HEART RATE
     Route: 065
     Dates: start: 20141120
  12. E45 [Concomitant]
     Active Substance: LANOLIN\LIGHT MINERAL OIL\PARAFFIN
     Indication: PRODUCT USED FOR UNKNOWN INDICATION
     Dosage: FREQUENTLYFREQUENTLY
     Route: 061
     Dates: start: 20080207
  13. PARACETAMOL [Concomitant]
     Active Substance: ACETAMINOPHEN
     Indication: PRODUCT USED FOR UNKNOWN INDICATION
     Dosage: 1-2 FOUR TIMES DAILY1-2 FOUR TIMES DAILY
     Dates: start: 20120810
  14. PREDNISOLONE. [Concomitant]
     Active Substance: PREDNISOLONE
     Indication: PRODUCT USED FOR UNKNOWN INDICATION
     Dosage: FOR 4 DAYS
     Route: 065
     Dates: start: 20161010, end: 20161014
  15. CANDESARTAN. [Concomitant]
     Active Substance: CANDESARTAN
     Indication: BLOOD PRESSURE MEASUREMENT
     Dosage: AND TO P...
     Route: 065
     Dates: start: 20161010
  16. SALBUTAMOL [Concomitant]
     Active Substance: ALBUTEROL
     Indication: PRODUCT USED FOR UNKNOWN INDICATION
     Dosage: INHALE ONE OR TWO PUFFS UPTO FOUR...INHALE ONE OR TWO PUFFS
     Route: 055
     Dates: start: 20141120
  17. IRBESARTAN. [Suspect]
     Active Substance: IRBESARTAN
     Indication: PRODUCT USED FOR UNKNOWN INDICATION
     Dosage: UNK UNK,UNK,UNKNOWN
     Route: 065
     Dates: start: 20161019
  18. BETAHISTINE [Concomitant]
     Active Substance: BETAHISTINE
     Indication: PRODUCT USED FOR UNKNOWN INDICATION
     Dosage: 1 DF,TID,
     Route: 065
     Dates: start: 20090921
  19. DOUBLEBASE [Concomitant]
     Active Substance: ISOPROPYL MYRISTATE\PARAFFIN
     Indication: PRODUCT USED FOR UNKNOWN INDICATION
     Dosage: UNK UNK,PRN,
     Route: 065
     Dates: start: 20120529
  20. FLUTICASONE. [Concomitant]
     Active Substance: FLUTICASONE
     Indication: PRODUCT USED FOR UNKNOWN INDICATION
     Dosage: USE REGULARLY (PRE...USE REGULARLY
     Route: 055
     Dates: start: 20150127
  21. LACIDIPINE [Concomitant]
     Active Substance: LACIDIPINE
     Indication: PRODUCT USED FOR UNKNOWN INDICATION
     Dosage: 1 DF,QD,
     Route: 065
     Dates: start: 20100617

REACTIONS (2)
  - Angioedema [Recovered/Resolved]
  - Swelling face [Recovered/Resolved]

NARRATIVE: CASE EVENT DATE: 20161019
